FAERS Safety Report 4376485-6 (Version None)
Quarter: 2004Q2

REPORT INFORMATION
  Report Type: 
  Country: None (occurrence: None)
  Receive Date: 20040608
  Receipt Date: 20040527
  Transmission Date: 20050107
  Serious: Yes (Other)
  Sender: FDA-Public Use
  Company Number: ENT-2004-0103

PATIENT
  Age: 67 Year
  Sex: Female

DRUGS (4)
  1. COMTAN [Suspect]
     Dosage: 600 MG, 3 IN 1 D, ORAL
     Route: 048
     Dates: start: 20030701, end: 20031001
  2. SINEMET [Suspect]
     Dosage: 25 MG /100 MG THREE TIMES A DAY, ORAL
     Route: 048
     Dates: start: 20030701, end: 20031001
  3. PRILOSEC (UNKNONW) [Concomitant]
  4. SYNTHROID (UNKNOWN) [Concomitant]

REACTIONS (7)
  - ASTHENIA [None]
  - CONFUSIONAL STATE [None]
  - HALLUCINATION [None]
  - MEDICATION ERROR [None]
  - MUSCLE SPASMS [None]
  - PAIN IN EXTREMITY [None]
  - SOMNOLENCE [None]
